FAERS Safety Report 18627741 (Version 1)
Quarter: 2020Q4

REPORT INFORMATION
  Report Type: Spontaneous
  Country: US (occurrence: US)
  Receive Date: 20201216
  Receipt Date: 20201216
  Transmission Date: 20210114
  Serious: Yes (Hospitalization)
  Sender: FDA-Public Use
  Company Number: None

PATIENT
  Age: 60 Year
  Sex: Female

DRUGS (2)
  1. N/A [Concomitant]
     Active Substance: UNSPECIFIED INGREDIENT
  2. HUMIRA [Suspect]
     Active Substance: ADALIMUMAB
     Indication: PROCTITIS ULCERATIVE
     Dosage: ?          OTHER FREQUENCY:EVERY 2 WEEKS;?
     Route: 058
     Dates: start: 20201015

REACTIONS (3)
  - Headache [None]
  - Haemorrhage [None]
  - Fatigue [None]
